FAERS Safety Report 17872512 (Version 1)
Quarter: 2020Q2

REPORT INFORMATION
  Report Type: Spontaneous
  Country: CN (occurrence: CN)
  Receive Date: 20200608
  Receipt Date: 20200608
  Transmission Date: 20200714
  Serious: Yes (Hospitalization, Other)
  Sender: FDA-Public Use
  Company Number: CN-PFIZER INC-2020220282

PATIENT
  Age: 34 Year
  Sex: Male
  Weight: 62 kg

DRUGS (1)
  1. CYTOSAR [Suspect]
     Active Substance: CYTARABINE
     Indication: SYMPTOMATIC TREATMENT
     Dosage: 200 MG, 1X/DAY
     Route: 041
     Dates: start: 20200513, end: 20200519

REACTIONS (1)
  - Bone marrow failure [Recovering/Resolving]

NARRATIVE: CASE EVENT DATE: 20200520
